FAERS Safety Report 8016493-7 (Version None)
Quarter: 2011Q4

REPORT INFORMATION
  Report Type: 
  Country: None (occurrence: None)
  Receive Date: 20111230
  Receipt Date: 20111220
  Transmission Date: 20120403
  Serious: Yes (Congenital Anomaly, Other)
  Sender: FDA-Public Use
  Company Number: PHHY2011GB83957

PATIENT
  Sex: Female
  Weight: 1.76 kg

DRUGS (5)
  1. ETHAMBUTOL HYDROCHLORIDE [Suspect]
     Indication: TUBERCULOSIS
     Dosage: 800 MG, QD
     Route: 064
     Dates: start: 20090423, end: 20090626
  2. RIFAMPICIN [Suspect]
     Indication: TUBERCULOSIS
     Dosage: 5 DF, UNK
     Route: 064
     Dates: start: 20090423, end: 20090623
  3. ACYCLOVIR [Concomitant]
     Indication: GENITAL HERPES
     Route: 064
     Dates: start: 20070301
  4. RIFAMPIN AND ISONIAZID [Concomitant]
     Dosage: 2 DF, UNK
     Route: 064
     Dates: start: 20090623, end: 20090628
  5. PYRIDOXINE HCL [Concomitant]
     Dosage: 10 MG, QD
     Route: 064
     Dates: start: 20090423, end: 20110623

REACTIONS (6)
  - LOW BIRTH WEIGHT BABY [None]
  - BLOOD THYROID STIMULATING HORMONE INCREASED [None]
  - MATERNAL EXPOSURE DURING PREGNANCY [None]
  - PREMATURE RUPTURE OF MEMBRANES [None]
  - DEAFNESS NEUROSENSORY [None]
  - CYTOMEGALOVIRUS TEST POSITIVE [None]
